FAERS Safety Report 9612651 (Version 2)
Quarter: 2013Q4

REPORT INFORMATION
  Report Type: Spontaneous
  Country: GB (occurrence: GB)
  Receive Date: 20131010
  Receipt Date: 20131015
  Transmission Date: 20140711
  Serious: Yes (Death, Life-Threatening, Hospitalization)
  Sender: FDA-Public Use
  Company Number: GB-PFIZER INC-2013290540

PATIENT
  Age: 31 Year
  Sex: Male
  Weight: 32 kg

DRUGS (8)
  1. DICLOFENAC [Suspect]
     Indication: ANALGESIC THERAPY
     Dosage: 25 MG AS NECESSARY
     Route: 048
  2. NAPROXEN [Suspect]
     Indication: ANALGESIC THERAPY
     Dosage: 500 MG, TWICE DAILY
     Route: 048
  3. TIZANIDINE HYDROCHLORIDE [Concomitant]
     Dosage: UNK
  4. DANTROLENE [Concomitant]
     Dosage: UNK
  5. BACLOFEN [Concomitant]
     Dosage: UNK
  6. AZITHROMYCIN [Concomitant]
     Dosage: UNK
  7. TOCOPHERYL ACETATE [Concomitant]
     Dosage: UNK
  8. GABAPENTIN [Concomitant]
     Dosage: UNK

REACTIONS (1)
  - Upper gastrointestinal haemorrhage [Fatal]
